FAERS Safety Report 23511274 (Version 1)
Quarter: 2024Q1

REPORT INFORMATION
  Report Type: Spontaneous
  Country: US (occurrence: US)
  Receive Date: 20240212
  Receipt Date: 20240212
  Transmission Date: 20240409
  Serious: No
  Sender: FDA-Public Use
  Company Number: US-SA-SAC20240205001844

PATIENT
  Age: 14 Year
  Sex: Male

DRUGS (2)
  1. DUPIXENT [Suspect]
     Active Substance: DUPILUMAB
     Indication: Illness
     Dosage: 200MG QOW
     Route: 058
  2. LUPRON DEPOT-PED [Concomitant]
     Active Substance: LEUPROLIDE ACETATE

REACTIONS (2)
  - Pruritus [Unknown]
  - Product dose omission issue [Unknown]
